FAERS Safety Report 11013748 (Version 2)
Quarter: 2015Q2

REPORT INFORMATION
  Report Type: Spontaneous
  Country: US (occurrence: US)
  Receive Date: 20150412
  Receipt Date: 20150526
  Transmission Date: 20150821
  Serious: No
  Sender: FDA-Public Use
  Company Number: US-JNJFOC-20131108837

PATIENT
  Age: 60 Year
  Sex: Female
  Weight: 68.04 kg

DRUGS (2)
  1. PANCREAZE [Suspect]
     Active Substance: PANCRELIPASE
     Indication: PANCREATIC DISORDER
     Route: 065
     Dates: start: 20131113
  2. PANCREAZE [Suspect]
     Active Substance: PANCRELIPASE
     Indication: PANCREATIC DISORDER
     Dosage: 4200U
     Route: 065

REACTIONS (2)
  - Adverse event [Unknown]
  - Oral pain [Unknown]

NARRATIVE: CASE EVENT DATE: 20131113
